FAERS Safety Report 24758934 (Version 1)
Quarter: 2024Q4

REPORT INFORMATION
  Report Type: Spontaneous
  Country: US (occurrence: US)
  Receive Date: 20241220
  Receipt Date: 20241220
  Transmission Date: 20250115
  Serious: Yes (Other)
  Sender: NOVARTIS
  Company Number: US-002147023-NVSC2024US236515

PATIENT
  Age: 50 Year

DRUGS (1)
  1. FABHALTA [Suspect]
     Active Substance: IPTACOPAN HYDROCHLORIDE
     Indication: IgA nephropathy
     Dosage: UNK
     Route: 065

REACTIONS (3)
  - Glomerular filtration rate decreased [Unknown]
  - Proteinuria [Unknown]
  - Blood creatinine increased [Unknown]
